FAERS Safety Report 5895701-2 (Version None)
Quarter: 2008Q3

REPORT INFORMATION
  Report Type: 
  Country: None (occurrence: None)
  Receive Date: 20080924
  Receipt Date: 20071107
  Transmission Date: 20090109
  Serious: No
  Sender: FDA-Public Use
  Company Number: US-BAYER-200714430BWH

PATIENT
  Age: 59 Year
  Sex: Female

DRUGS (3)
  1. CIPRO [Suspect]
     Indication: URINARY TRACT INFECTION
  2. METHOTREXATE [Suspect]
     Indication: POLYMYOSITIS
  3. PROZAC [Suspect]
     Indication: DEPRESSION

REACTIONS (1)
  - APHTHOUS STOMATITIS [None]
